FAERS Safety Report 14432610 (Version 2)
Quarter: 2018Q1

REPORT INFORMATION
  Report Type: Report from Study
  Country: US (occurrence: US)
  Receive Date: 20180124
  Receipt Date: 20180208
  Transmission Date: 20180509
  Serious: Yes (Hospitalization, Other)
  Sender: FDA-Public Use
  Company Number: US-GILEAD-2018-0316751

PATIENT
  Age: 70 Year
  Sex: Female
  Weight: 53.1 kg

DRUGS (15)
  1. PLAQUENIL                          /00072602/ [Concomitant]
     Active Substance: HYDROXYCHLOROQUINE DIPHOSPHATE
  2. NOVOLOG [Concomitant]
     Active Substance: INSULIN ASPART
  3. TOPROL XL [Concomitant]
     Active Substance: METOPROLOL SUCCINATE
  4. LASIX [Concomitant]
     Active Substance: FUROSEMIDE
  5. MULTIVITAMIN                       /00097801/ [Concomitant]
     Active Substance: VITAMINS
  6. DIGOXIN. [Concomitant]
     Active Substance: DIGOXIN
  7. ELIQUIS [Concomitant]
     Active Substance: APIXABAN
  8. CAPTOPRIL. [Concomitant]
     Active Substance: CAPTOPRIL
  9. ADCIRCA [Concomitant]
     Active Substance: TADALAFIL
     Dosage: 20 MG, BID
  10. CALCIUM CITRATE [Concomitant]
     Active Substance: CALCIUM CITRATE
  11. ZAROXOLYN [Concomitant]
     Active Substance: METOLAZONE
  12. NORVASC [Concomitant]
     Active Substance: AMLODIPINE BESYLATE
  13. AMBRISENTAN [Suspect]
     Active Substance: AMBRISENTAN
     Indication: PULMONARY HYPERTENSION
     Dosage: 10 MG, QD
     Route: 048
     Dates: start: 20170110
  14. URSODIOL. [Concomitant]
     Active Substance: URSODIOL
  15. DOXYCYCLINE. [Concomitant]
     Active Substance: DOXYCYCLINE

REACTIONS (4)
  - Duodenal ulcer [Recovered/Resolved]
  - Blood count abnormal [Unknown]
  - Haemorrhagic anaemia [Recovered/Resolved]
  - Haematoma [Recovered/Resolved]

NARRATIVE: CASE EVENT DATE: 201712
